FAERS Safety Report 14583951 (Version 1)
Quarter: 2018Q1

REPORT INFORMATION
  Report Type: Spontaneous
  Country: None (occurrence: US)
  Receive Date: 20180228
  Receipt Date: 20180228
  Transmission Date: 20180509
  Serious: No
  Sender: FDA-Public Use
  Company Number: US-MEDAC PHARMA, INC.-2042736

PATIENT
  Age: 65 Year
  Sex: Male
  Weight: 97.73 kg

DRUGS (7)
  1. DORZOLAMIDE HYDROCHLORIDE. [Concomitant]
     Active Substance: DORZOLAMIDE HYDROCHLORIDE
     Route: 047
  2. DOXYCYCLINE. [Concomitant]
     Active Substance: DOXYCYCLINE
  3. ERYTHROMYCIN. [Concomitant]
     Active Substance: ERYTHROMYCIN
     Route: 047
  4. BRIMONIDINE [Concomitant]
     Active Substance: BRIMONIDINE TARTRATE
     Route: 047
  5. RASUVO [Suspect]
     Active Substance: METHOTREXATE SODIUM
     Indication: AUTOIMMUNE DISORDER
     Dates: start: 201709
  6. FOLIC ACID. [Concomitant]
     Active Substance: FOLIC ACID
  7. OFLOXACIN. [Concomitant]
     Active Substance: OFLOXACIN
     Route: 047

REACTIONS (1)
  - Injection site pain [Not Recovered/Not Resolved]
